FAERS Safety Report 23241043 (Version 1)
Quarter: 2023Q4

REPORT INFORMATION
  Report Type: Spontaneous
  Country: US (occurrence: US)
  Receive Date: 20231129
  Receipt Date: 20231129
  Transmission Date: 20240110
  Serious: Yes (Hospitalization)
  Sender: FDA-Public Use
  Company Number: US-MYLANLABS-2023M1124153

PATIENT
  Age: 14 Year
  Sex: Female

DRUGS (9)
  1. INSULIN NOS [Suspect]
     Active Substance: INSULIN NOS
     Indication: Diabetic ketoacidosis
     Dosage: UNK, RECEIVED INSULIN DRIP
     Route: 065
  2. INSULIN GLARGINE [Suspect]
     Active Substance: INSULIN GLARGINE
     Indication: Type 1 diabetes mellitus
     Dosage: UNK, QD, RECEIVED MULTIPLE DAILY INJECTION REGIMEN
     Route: 065
  3. INSULIN LISPRO [Suspect]
     Active Substance: INSULIN LISPRO
     Indication: Type 1 diabetes mellitus
     Dosage: UNK, QD, RECEIVED MULTIPLE DAILY INJECTION REGIMEN
     Route: 065
  4. SODIUM CHLORIDE [Concomitant]
     Active Substance: SODIUM CHLORIDE
     Indication: Diabetic ketoacidosis
     Dosage: 1 LITER, BOLUS
     Route: 065
  5. SODIUM CHLORIDE [Concomitant]
     Active Substance: SODIUM CHLORIDE
     Dosage: UNK
     Route: 042
  6. DEXTROSE [Concomitant]
     Active Substance: DEXTROSE\DEXTROSE MONOHYDRATE
     Indication: Diabetic ketoacidosis
     Dosage: UNK, RECEIVED VARYING DEXTROSE CONTENT VIA A TWO BAG SYSTEM ADMINISTERED AT ONE....
     Route: 042
  7. POTASSIUM [Concomitant]
     Active Substance: POTASSIUM
     Indication: Diabetic ketoacidosis
     Dosage: UNK, RECEIVED VARYING POTASSIUM CONTENT VIA A TWO BAG SYSTEM ADMINISTERED.....
     Route: 042
  8. POTASSIUM ACETATE [Concomitant]
     Active Substance: POTASSIUM ACETATE
     Indication: Hypokalaemia
     Dosage: 16 MILLIEQUIVALENT, RECEIVED ONE DOSE
     Route: 042
  9. POTASSIUM PHOSPHATE [Concomitant]
     Active Substance: POTASSIUM PHOSPHATE
     Indication: Hypophosphataemia
     Dosage: 17 MILLIMOLE, RECEIVED ONE DOSE
     Route: 042

REACTIONS (6)
  - Oedema [Recovered/Resolved]
  - Weight increased [Recovering/Resolving]
  - Pleural effusion [Unknown]
  - Pericardial effusion [Unknown]
  - Hypokalaemia [Recovered/Resolved]
  - Off label use [Unknown]
